FAERS Safety Report 5615323-8 (Version None)
Quarter: 2008Q1

REPORT INFORMATION
  Report Type: 
  Country: None (occurrence: None)
  Receive Date: 20080206
  Receipt Date: 20080201
  Transmission Date: 20080703
  Serious: Yes (Other)
  Sender: FDA-Public Use
  Company Number: B0506090A

PATIENT

DRUGS (1)
  1. ARIXTRA [Suspect]
     Indication: FRACTURE
     Dosage: 2.5MG PER DAY
     Route: 058
     Dates: start: 20080101

REACTIONS (2)
  - ASCITES [None]
  - PLEURAL EFFUSION [None]
